FAERS Safety Report 4806781-7 (Version None)
Quarter: 2005Q4

REPORT INFORMATION
  Report Type: 
  Country: None (occurrence: None)
  Receive Date: 20051019
  Receipt Date: 20050929
  Transmission Date: 20060501
  Serious: Yes (Death)
  Sender: FDA-Public Use
  Company Number: JP_050907521

PATIENT
  Age: 45 Year
  Sex: Male

DRUGS (7)
  1. ZYPREXA [Suspect]
     Indication: SCHIZOPHRENIA
     Dosage: 20 MG DAY
     Dates: start: 20050829
  2. RISPERDAL [Concomitant]
  3. SETOUS (ZOTEPINE) [Concomitant]
  4. MEILAX (ETHYL LOFLAZEPATE) [Concomitant]
  5. RHYTHMY (RILMAZAFONE) [Concomitant]
  6. NITRAZEPAM [Concomitant]
  7. VALPROATE SODIUM [Concomitant]

REACTIONS (4)
  - BODY TEMPERATURE DECREASED [None]
  - CARDIO-RESPIRATORY ARREST [None]
  - MUSCULOSKELETAL STIFFNESS [None]
  - MYDRIASIS [None]
